FAERS Safety Report 6303571-3 (Version None)
Quarter: 2009Q3

REPORT INFORMATION
  Report Type: 
  Country: None (occurrence: None)
  Receive Date: 20090807
  Receipt Date: 20090807
  Transmission Date: 20100115
  Serious: Yes (Life-Threatening)
  Sender: FDA-Public Use
  Company Number: None

PATIENT
  Sex: Male

DRUGS (2)
  1. LAMOTRIGINE [Suspect]
     Indication: EPILEPSY
     Dosage: 200 MG 2 TABS BID PO
     Route: 048
  2. LAMOTRIGINE [Suspect]
     Indication: EPILEPSY
     Dosage: 150 MG 1 TAB Q PM PO
     Route: 048

REACTIONS (1)
  - NO ADVERSE EVENT [None]
